FAERS Safety Report 15723969 (Version 1)
Quarter: 2018Q4

REPORT INFORMATION
  Report Type: Spontaneous
  Country: BR (occurrence: BR)
  Receive Date: 20181214
  Receipt Date: 20181214
  Transmission Date: 20190205
  Serious: Yes (Disabling)
  Sender: FDA-Public Use
  Company Number: BR-009507513-1812BRA004161

PATIENT
  Sex: Female
  Weight: 68 kg

DRUGS (5)
  1. JANUMET XR [Suspect]
     Active Substance: METFORMIN HYDROCHLORIDE\SITAGLIPTIN PHOSPHATE
     Indication: DIABETES MELLITUS
     Dosage: 1 TABLET DAILY
     Route: 048
     Dates: start: 20181201, end: 201812
  2. VERTIGOHEEL [Concomitant]
     Active Substance: HOMEOPATHICS
     Indication: DIZZINESS
  3. VERTIGOHEEL [Concomitant]
     Active Substance: HOMEOPATHICS
     Indication: EAR DISORDER
     Dosage: 1 DOSAGE FORM, QD (NIGHTLY)
     Dates: start: 201807
  4. CENTRUM (MINERALS (UNSPECIFIED) (+) VITAMINS (UNSPECIFIED)) [Concomitant]
     Dosage: 1 DOSAGE FORM, QD
     Dates: start: 201810
  5. PURAN [Concomitant]
     Active Substance: LEVOTHYROXINE SODIUM
     Indication: HYPOTHYROIDISM
     Dosage: 1 TABLET DAILY

REACTIONS (4)
  - Product prescribing error [Unknown]
  - Hypoglycaemia [Unknown]
  - Chills [Unknown]
  - Dizziness [Unknown]

NARRATIVE: CASE EVENT DATE: 20181201
